FAERS Safety Report 9737311 (Version 1)
Quarter: 2013Q4

REPORT INFORMATION
  Report Type: Spontaneous
  Country: US (occurrence: US)
  Receive Date: 20131206
  Receipt Date: 20131206
  Transmission Date: 20140711
  Serious: No
  Sender: FDA-Public Use
  Company Number: US-BIOGENIDEC-2013BI096636

PATIENT
  Age: 36 Year
  Sex: Female

DRUGS (8)
  1. TECFIDERA [Suspect]
     Indication: PRODUCT USED FOR UNKNOWN INDICATION
     Route: 048
     Dates: start: 20130419, end: 201304
  2. TECFIDERA [Suspect]
     Indication: PRODUCT USED FOR UNKNOWN INDICATION
     Route: 048
     Dates: start: 201304
  3. IMODIUM [Concomitant]
  4. CYMBALTA [Concomitant]
  5. TRAMADOL [Concomitant]
  6. NUDEXTRA [Concomitant]
  7. GABAPENTIN [Concomitant]
  8. L-METHYLFELATE [Concomitant]

REACTIONS (1)
  - Diarrhoea [Not Recovered/Not Resolved]
